FAERS Safety Report 9207352 (Version 2)
Quarter: 2014Q1

REPORT INFORMATION
  Report Type: Spontaneous
  Country: US (occurrence: US)
  Receive Date: 20130403
  Receipt Date: 20140129
  Transmission Date: 20141002
  Serious: Yes (Other)
  Sender: FDA-Public Use
  Company Number: US-BAYER-2013-039758

PATIENT
  Age: 22 Year
  Sex: Female

DRUGS (10)
  1. YAZ [Suspect]
     Dosage: UNK
     Dates: start: 2007, end: 2012
  2. YASMIN [Suspect]
     Dosage: UNK
     Dates: start: 2007, end: 2012
  3. OCELLA [Suspect]
     Dosage: UNK
     Dates: start: 2007, end: 2012
  4. CIPROFLOXACIN [Concomitant]
     Dosage: 500 MG, UNK
  5. TRIMETHOPRIM COMP. [Concomitant]
     Dosage: 800-160 MG
  6. IBUPROFEN [Concomitant]
     Dosage: 800 MG, UNK
  7. PHENAZOPYRIDINE [Concomitant]
     Dosage: 200 MG, UNK
  8. LEVOTHYROXINE [Concomitant]
     Dosage: 125 ?G, UNK
  9. SYNTHROID [Concomitant]
  10. OXYCODONE/APAP [Concomitant]
     Dosage: 5-325 MG

REACTIONS (5)
  - Gallbladder disorder [None]
  - Cholecystitis chronic [None]
  - Injury [None]
  - Pain [None]
  - Emotional distress [None]
